FAERS Safety Report 7240829-8 (Version None)
Quarter: 2011Q1

REPORT INFORMATION
  Report Type: 
  Country: None (occurrence: None)
  Receive Date: 20110120
  Receipt Date: 20110120
  Transmission Date: 20110831
  Serious: Yes (Other)
  Sender: FDA-Public Use
  Company Number: None

PATIENT
  Age: 54 Year
  Sex: Male
  Weight: 136.0791 kg

DRUGS (2)
  1. OMNARIS [Suspect]
     Indication: SINUS DISORDER
     Dosage: 50 MCG ONE SQUIRT IN NOSTRIL NASAL (OCT)
     Route: 045
  2. OMNARIS [Suspect]
     Indication: HYPERSENSITIVITY
     Dosage: 50 MCG ONE SQUIRT IN NOSTRIL NASAL (OCT)
     Route: 045

REACTIONS (1)
  - CONVULSION [None]
